FAERS Safety Report 5134299-3 (Version None)
Quarter: 2006Q4

REPORT INFORMATION
  Report Type: 
  Country: None (occurrence: None)
  Receive Date: 20060831
  Receipt Date: 20060707
  Transmission Date: 20070319
  Serious: No
  Sender: FDA-Public Use
  Company Number: 2006-BP-07826BP

PATIENT
  Age: 54 Year
  Sex: Female

DRUGS (6)
  1. SPIRIVA [Suspect]
     Indication: CHRONIC OBSTRUCTIVE PULMONARY DISEASE
     Dosage: 18 MCG (18 MCG,1 IN 1 D),IH
     Dates: start: 20060101
  2. SPIRIVA [Suspect]
  3. ALBUTEROL [Concomitant]
  4. INSULIN (INSULIN) [Concomitant]
  5. DIABETIC NEUROPATHY DRUG (ALL OTHER THERAPEUTIC PRODUCTS) [Concomitant]
  6. CRESTOR [Concomitant]

REACTIONS (2)
  - DYSPNOEA [None]
  - INSOMNIA [None]
